FAERS Safety Report 9131722 (Version 3)
Quarter: 2013Q2

REPORT INFORMATION
  Report Type: Spontaneous
  Country: US (occurrence: US)
  Receive Date: 20130301
  Receipt Date: 20130503
  Transmission Date: 20140414
  Serious: Yes (Other)
  Sender: FDA-Public Use
  Company Number: US-009507513-1302USA007756

PATIENT
  Sex: Male

DRUGS (11)
  1. PEGINTRON [Suspect]
     Indication: HEPATITIS C
     Dosage: REDIPEN, UNK
     Dates: start: 20130207
  2. REBETOL [Suspect]
     Indication: HEPATITIS C
     Dosage: UNK
     Route: 048
     Dates: start: 20130207
  3. VICTRELIS [Suspect]
     Dosage: UNK
     Route: 048
     Dates: start: 20130307
  4. NEURONTIN [Concomitant]
     Indication: ARTHRITIS
  5. ZOLOFT [Concomitant]
     Indication: DEPRESSION
     Dosage: UNK
     Dates: end: 2013
  6. SEROQUEL [Concomitant]
     Indication: DEPRESSION
     Dosage: UNK
     Dates: end: 2013
  7. TRAZODONE [Concomitant]
  8. KLONOPIN [Concomitant]
  9. VITAMINS (UNSPECIFIED) [Concomitant]
  10. MILK THISTLE [Concomitant]
  11. ACIDOPHILUS [Concomitant]
     Dosage: UNK

REACTIONS (14)
  - Swollen tongue [Unknown]
  - Injection site reaction [Unknown]
  - Flushing [Unknown]
  - Haemoglobin decreased [Unknown]
  - Injection site reaction [Unknown]
  - Anaemia [Unknown]
  - Chills [Unknown]
  - Pyrexia [Unknown]
  - Bone pain [Unknown]
  - Depression [Unknown]
  - Gastrointestinal disorder [Unknown]
  - Ear disorder [Unknown]
  - Weight decreased [Recovering/Resolving]
  - Decreased appetite [Recovering/Resolving]
